FAERS Safety Report 24986181 (Version 1)
Quarter: 2025Q1

REPORT INFORMATION
  Report Type: Spontaneous
  Country: BE (occurrence: BE)
  Receive Date: 20250219
  Receipt Date: 20250219
  Transmission Date: 20250409
  Serious: Yes (Other)
  Sender: ROCHE
  Company Number: BE-002147023-NVSC2025BE026260

PATIENT
  Sex: Female

DRUGS (7)
  1. LUCENTIS [Suspect]
     Active Substance: RANIBIZUMAB
     Indication: Neovascular age-related macular degeneration
     Route: 050
     Dates: start: 2013, end: 201309
  2. LUCENTIS [Suspect]
     Active Substance: RANIBIZUMAB
     Route: 050
     Dates: start: 2015
  3. LUCENTIS [Suspect]
     Active Substance: RANIBIZUMAB
     Route: 050
     Dates: start: 201610
  4. LUCENTIS [Suspect]
     Active Substance: RANIBIZUMAB
     Dosage: UNK, (ONCE IN 5 WEEKS, INJECTION INTO THE RIGHT EYE)
     Route: 050
     Dates: start: 201802
  5. LUCENTIS [Suspect]
     Active Substance: RANIBIZUMAB
     Route: 050
     Dates: start: 2019
  6. LUCENTIS [Suspect]
     Active Substance: RANIBIZUMAB
     Dosage: UNK, Q4W (INJECTION INTO THE LEFT EYE)
     Route: 050
     Dates: start: 2019, end: 2021
  7. LUCENTIS [Suspect]
     Active Substance: RANIBIZUMAB
     Dosage: UNK, (PROGRESSIVE ELONGATION ONCE IN 11 WEEKS, INJECTION INTO THE RIGHT EYE)
     Route: 050
     Dates: start: 202109, end: 2021

REACTIONS (3)
  - Retinal haemorrhage [Recovered/Resolved]
  - Retinal pigment epithelial tear [Unknown]
  - Drug ineffective [Unknown]

NARRATIVE: CASE EVENT DATE: 20130901
